FAERS Safety Report 25901360 (Version 1)
Quarter: 2025Q4

REPORT INFORMATION
  Report Type: Spontaneous
  Country: US (occurrence: US)
  Receive Date: 20251009
  Receipt Date: 20251009
  Transmission Date: 20260118
  Serious: No
  Sender: CHATTEM
  Company Number: US-OPELLA-2025OHG029756

PATIENT
  Sex: Female

DRUGS (2)
  1. XYZAL [Suspect]
     Active Substance: LEVOCETIRIZINE DIHYDROCHLORIDE
     Indication: Product used for unknown indication
     Route: 065
  2. XYZAL [Suspect]
     Active Substance: LEVOCETIRIZINE DIHYDROCHLORIDE
     Route: 065
     Dates: start: 202509, end: 20251007

REACTIONS (4)
  - Peripheral coldness [Unknown]
  - Paraesthesia [Unknown]
  - Inappropriate schedule of product discontinuation [Unknown]
  - Product use issue [Unknown]

NARRATIVE: CASE EVENT DATE: 20250901
